FAERS Safety Report 15256867 (Version 1)
Quarter: 2018Q3

REPORT INFORMATION
  Report Type: Spontaneous
  Country: US (occurrence: US)
  Receive Date: 20180718
  Receipt Date: 20180718
  Transmission Date: 20181010
  Serious: Yes (Life-Threatening, Hospitalization, Disabling, Other)
  Sender: FDA-Public Use
  Company Number: None

PATIENT
  Age: 44 Year
  Sex: Female
  Weight: 103.5 kg

DRUGS (1)
  1. VIMOVO [Suspect]
     Active Substance: ESOMEPRAZOLE MAGNESIUM\NAPROXEN
     Indication: INFLAMMATION
     Route: 048
     Dates: start: 20180312, end: 20180328

REACTIONS (5)
  - Therapy cessation [None]
  - Pulmonary embolism [None]
  - Cardiomegaly [None]
  - Dyspnoea [None]
  - Drug dose omission [None]

NARRATIVE: CASE EVENT DATE: 20180709
